FAERS Safety Report 14243796 (Version 1)
Quarter: 2017Q4

REPORT INFORMATION
  Report Type: Spontaneous
  Country: US (occurrence: US)
  Receive Date: 20171201
  Receipt Date: 20171201
  Transmission Date: 20180321
  Serious: Yes (Other)
  Sender: FDA-Public Use
  Company Number: None

PATIENT
  Age: 51 Year
  Sex: Female
  Weight: 65.25 kg

DRUGS (11)
  1. MULTIVITAMIN [Concomitant]
     Active Substance: VITAMINS
  2. GINKO BILOBA [Concomitant]
     Active Substance: GINKGO
  3. BIOTIN [Concomitant]
     Active Substance: BIOTIN
  4. TRULICITY [Suspect]
     Active Substance: DULAGLUTIDE
     Indication: DIABETES MELLITUS
     Dosage: ?          QUANTITY:1 INJECTION(S);OTHER FREQUENCY:ONCE A WEEK;?
     Route: 030
  5. GABAPENTIN. [Concomitant]
     Active Substance: GABAPENTIN
  6. COENZYME Q10 [Concomitant]
     Active Substance: UBIDECARENONE
  7. TURMERIC [Concomitant]
     Active Substance: HERBALS\TURMERIC
  8. KRILL OIL [Concomitant]
     Active Substance: DIETARY SUPPLEMENT
  9. CINNAMON. [Concomitant]
     Active Substance: CINNAMON
  10. VITAMIN D [Concomitant]
     Active Substance: CHOLECALCIFEROL
  11. COCONUT OIL [Concomitant]
     Active Substance: COCONUT OIL

REACTIONS (2)
  - Breast cancer [None]
  - Hypophagia [None]

NARRATIVE: CASE EVENT DATE: 20171110
